FAERS Safety Report 24965556 (Version 1)
Quarter: 2025Q1

REPORT INFORMATION
  Report Type: Report from Study
  Country: US (occurrence: US)
  Receive Date: 20250213
  Receipt Date: 20250213
  Transmission Date: 20250409
  Serious: Yes (Other)
  Sender: ACADIA PHARMACEUTICALS
  Company Number: US-ACADIA PHARMACEUTICALS INC.-ACA-2025-TRF-001381

PATIENT
  Sex: Female

DRUGS (2)
  1. DAYBUE [Suspect]
     Active Substance: TROFINETIDE
     Indication: Rett syndrome
     Dosage: 40 MILLILITER
     Route: 048
  2. DAYBUE [Suspect]
     Active Substance: TROFINETIDE
     Dosage: UNK, BID (20ML IN AM/25ML IN EVENING)
     Route: 048

REACTIONS (4)
  - Seizure [Recovered/Resolved]
  - Diarrhoea [Recovered/Resolved]
  - Underdose [Recovered/Resolved]
  - Incorrect dose administered [Recovered/Resolved]
